FAERS Safety Report 4862732-0 (Version None)
Quarter: 2005Q4

REPORT INFORMATION
  Report Type: 
  Country: None (occurrence: None)
  Receive Date: 20051221
  Receipt Date: 20051207
  Transmission Date: 20060501
  Serious: Yes (Hospitalization)
  Sender: FDA-Public Use
  Company Number: US-MERCK-0512USA00930

PATIENT
  Age: 83 Year
  Sex: Female
  Weight: 84 kg

DRUGS (8)
  1. VIOXX [Suspect]
     Indication: ARTHRITIS
     Route: 048
     Dates: start: 20020101, end: 20030101
  2. ALPRAZOLAM [Concomitant]
     Route: 065
  3. ASPIRIN [Concomitant]
     Route: 065
  4. CAPOTEN [Concomitant]
     Route: 065
  5. ELAVIL [Concomitant]
     Route: 065
  6. ISOPTIN [Concomitant]
     Route: 065
  7. LOPRESSOR [Concomitant]
     Route: 065
  8. SYNTHROID [Concomitant]
     Route: 065

REACTIONS (2)
  - CEREBROVASCULAR ACCIDENT [None]
  - OVERDOSE [None]
